FAERS Safety Report 4353874-7 (Version None)
Quarter: 2004Q2

REPORT INFORMATION
  Report Type: 
  Country: None (occurrence: None)
  Receive Date: 20040430
  Receipt Date: 20040421
  Transmission Date: 20050107
  Serious: Yes (Death)
  Sender: FDA-Public Use
  Company Number: 2004IC000076

PATIENT
  Age: 65 Year
  Sex: Female

DRUGS (13)
  1. FLUOROURACIL [Suspect]
     Indication: HEPATIC NEOPLASM MALIGNANT
     Dosage: SEE IMAGE
     Route: 013
     Dates: start: 20031027, end: 20031127
  2. FLUOROURACIL [Suspect]
     Indication: HEPATIC NEOPLASM MALIGNANT
     Dosage: SEE IMAGE
     Route: 013
     Dates: start: 20031215, end: 20031222
  3. FLUOROURACIL [Suspect]
     Indication: HEPATIC NEOPLASM MALIGNANT
     Dosage: SEE IMAGE
     Route: 013
     Dates: start: 20040106, end: 20040123
  4. FLUOROURACIL [Suspect]
     Indication: HEPATIC NEOPLASM MALIGNANT
     Dosage: SEE IMAGE
     Route: 013
     Dates: start: 20040216, end: 20040226
  5. CISPLATIN [Concomitant]
  6. BUTAMIDE [Concomitant]
  7. RENIVACE [Concomitant]
  8. GASTER [Concomitant]
  9. GLAKAY [Concomitant]
  10. ALLOPURINOL [Concomitant]
  11. LASIX [Concomitant]
  12. ALDACTONE-A [Concomitant]
  13. KREMEZIN [Concomitant]

REACTIONS (1)
  - INTERSTITIAL LUNG DISEASE [None]
